FAERS Safety Report 10051685 (Version 1)
Quarter: 2014Q1

REPORT INFORMATION
  Report Type: Spontaneous
  Country: US (occurrence: None)
  Receive Date: 20140331
  Receipt Date: 20140331
  Transmission Date: 20141002
  Serious: Yes (Death, Hospitalization)
  Sender: FDA-Public Use
  Company Number: US2014K0914LIT

PATIENT
  Age: 40 Year
  Sex: Female

DRUGS (1)
  1. LANSOPRAZOLE [Suspect]

REACTIONS (1)
  - Drug reaction with eosinophilia and systemic symptoms [None]
